FAERS Safety Report 15391806 (Version 3)
Quarter: 2018Q3

REPORT INFORMATION
  Report Type: Report from Study
  Country: IT (occurrence: US)
  Receive Date: 20180917
  Receipt Date: 20180926
  Transmission Date: 20181010
  Serious: Yes (Other)
  Sender: FDA-Public Use
  Company Number: IT-PFIZER INC-2018357567

PATIENT
  Age: 77 Year
  Sex: Female

DRUGS (9)
  1. ATORVASTATIN CALCIUM. [Suspect]
     Active Substance: ATORVASTATIN CALCIUM
     Dosage: UNK
  2. SIMVASTATIN. [Suspect]
     Active Substance: SIMVASTATIN
     Dosage: UNK
  3. RED YEAST RICE [Suspect]
     Active Substance: DIETARY SUPPLEMENT
     Indication: NUTRITIONAL SUPPLEMENTATION
     Dosage: UNK
  4. DIPYRIDAMOLE. [Suspect]
     Active Substance: DIPYRIDAMOLE
     Dosage: UNK
  5. LOVASTATIN. [Suspect]
     Active Substance: LOVASTATIN
     Dosage: UNK
  6. PRAVASTATIN SODIUM. [Suspect]
     Active Substance: PRAVASTATIN SODIUM
     Dosage: UNK
  7. ROSUVASTATIN. [Suspect]
     Active Substance: ROSUVASTATIN
     Dosage: UNK
  8. COLESTIPOL HCL [Suspect]
     Active Substance: COLESTIPOL HYDROCHLORIDE
     Dosage: UNK
  9. ACETYLSALICYLIC ACID [Suspect]
     Active Substance: ASPIRIN

REACTIONS (2)
  - Myopathy [Unknown]
  - Rhabdomyolysis [Unknown]
